FAERS Safety Report 8502087-3 (Version None)
Quarter: 2012Q3

REPORT INFORMATION
  Report Type: 
  Country: None (occurrence: None)
  Receive Date: 20120711
  Receipt Date: 20120623
  Transmission Date: 20120928
  Serious: No
  Sender: FDA-Public Use
  Company Number: CA-JNJFOC-20120612485

PATIENT
  Sex: Male
  Weight: 70.5 kg

DRUGS (2)
  1. REMICADE [Suspect]
     Indication: CROHN'S DISEASE
     Route: 042
     Dates: start: 20120623
  2. REMICADE [Suspect]
     Route: 042

REACTIONS (2)
  - SINUSITIS [None]
  - INFUSION SITE ERYTHEMA [None]
